FAERS Safety Report 8313025-0 (Version None)
Quarter: 2012Q2

REPORT INFORMATION
  Report Type: 
  Country: None (occurrence: None)
  Receive Date: 20120426
  Receipt Date: 20120416
  Transmission Date: 20120825
  Serious: Yes (Other)
  Sender: FDA-Public Use
  Company Number: CA-JNJFOC-20120407084

PATIENT
  Sex: Female

DRUGS (20)
  1. LORAZEPAM [Concomitant]
     Route: 048
  2. VITAMIN B-12 [Concomitant]
     Route: 048
  3. CELEBREX [Concomitant]
     Route: 048
  4. DIAMICRON [Concomitant]
     Dosage: 80 MG 1/2 TAB TWICE A DAY
     Route: 048
  5. LYRICA [Concomitant]
     Route: 048
  6. NASONEX [Concomitant]
     Route: 055
  7. UNKNOWN MEDICATION [Concomitant]
     Route: 048
  8. FENTANYL-100 [Concomitant]
     Dosage: 12 MCG, 1 PATCH EVERY 3 DAYS
     Route: 061
  9. SIMPONI [Suspect]
     Indication: RHEUMATOID ARTHRITIS
     Route: 058
     Dates: start: 20110528
  10. METFORMIN HCL [Concomitant]
     Route: 048
  11. ELAVIL [Concomitant]
     Route: 048
  12. NEXIUM [Concomitant]
     Route: 048
  13. VENTOLIN [Concomitant]
     Dosage: 100 MG 4 TIMES DAILY AS NEEDED
     Route: 055
  14. FLOVENT [Concomitant]
     Dosage: 250 MG TWICE A DAY (AS NEEDED)
     Route: 055
  15. AMLODIPINE [Concomitant]
     Route: 048
  16. ATACAND [Concomitant]
     Route: 048
  17. FERROUS SULFATE TAB [Concomitant]
     Route: 048
  18. EURO FOLIC [Concomitant]
     Dosage: 5 MG ^ACCORDING TO PRESCRIPTION^
     Route: 048
  19. MIRAPEX [Concomitant]
     Route: 048
  20. CALCIUM CARBONATE [Concomitant]
     Route: 048

REACTIONS (3)
  - WEIGHT DECREASED [None]
  - BRONCHITIS [None]
  - SINUSITIS [None]
